FAERS Safety Report 6786761-5 (Version None)
Quarter: 2010Q2

REPORT INFORMATION
  Report Type: 
  Country: None (occurrence: None)
  Receive Date: 20100623
  Receipt Date: 20100613
  Transmission Date: 20101027
  Serious: Yes (Other)
  Sender: FDA-Public Use
  Company Number: FR-PURDUE-USA-2010-0044363

PATIENT
  Age: 66 Year
  Sex: Male

DRUGS (3)
  1. OXYCODONE HCL [Suspect]
     Indication: CANCER PAIN
     Dosage: 120 MG, DAILY
     Route: 048
  2. FENTANYL [Interacting]
     Indication: CANCER PAIN
     Dosage: 200 MCG, SEE TEXT
     Route: 045
  3. ESCITALOPRAM [Interacting]
     Indication: AFFECTIVE DISORDER
     Dosage: 5 MG, DAILY

REACTIONS (2)
  - DRUG INTERACTION [None]
  - SEROTONIN SYNDROME [None]
